FAERS Safety Report 19785632 (Version 2)
Quarter: 2021Q4

REPORT INFORMATION
  Report Type: Report from Study
  Country: US (occurrence: US)
  Receive Date: 20210903
  Receipt Date: 20211004
  Transmission Date: 20220304
  Serious: No
  Sender: FDA-Public Use
  Company Number: US-BRISTOL-MYERS SQUIBB COMPANY-BMS-2021-088544

PATIENT
  Age: 51 Year
  Sex: Male

DRUGS (2)
  1. DASATINIB [Suspect]
     Active Substance: DASATINIB
     Indication: Hepatitis C
     Dosage: 100 MILLGRAM DAILY
     Route: 048
     Dates: start: 20210812
  2. DASATINIB [Suspect]
     Active Substance: DASATINIB
     Indication: Von Willebrand^s disease

REACTIONS (5)
  - Fatigue [Recovered/Resolved]
  - Diarrhoea [Recovered/Resolved]
  - Insomnia [Recovered/Resolved]
  - Intentional product use issue [Unknown]
  - Malaise [Unknown]
